FAERS Safety Report 7946455-7 (Version None)
Quarter: 2011Q4

REPORT INFORMATION
  Report Type: 
  Country: None (occurrence: None)
  Receive Date: 20111129
  Receipt Date: 20111122
  Transmission Date: 20120403
  Serious: Yes (Hospitalization, Other)
  Sender: FDA-Public Use
  Company Number: GB-B.I. PHARMACEUTICALS,INC./RIDGEFIELD-2011-UK-01267UK

PATIENT
  Age: 75 Year
  Sex: Female

DRUGS (12)
  1. DABIGATRAN [Suspect]
     Indication: POSTOPERATIVE THROMBOSIS
     Dosage: 150 MG
     Route: 048
     Dates: start: 20111014, end: 20111110
  2. FUROSEMIDE [Concomitant]
  3. AMLODIPINE [Concomitant]
  4. BISOPROLOL FUMATRATE [Concomitant]
  5. POLYETHYLENE GLYCOL [Concomitant]
  6. ATORVASTATIN [Concomitant]
  7. CANDESARTAN CILEXETIL [Concomitant]
  8. RANITIDE [Concomitant]
  9. ISOSORBIDE MONONITRATE [Concomitant]
  10. ACETAMINOPHEN [Concomitant]
  11. ASPIRIN [Concomitant]
  12. CODEINE PHOSPHATE [Concomitant]

REACTIONS (1)
  - ISCHAEMIC STROKE [None]
